FAERS Safety Report 6768283-0 (Version None)
Quarter: 2010Q2

REPORT INFORMATION
  Report Type: 
  Country: None (occurrence: None)
  Receive Date: 20100614
  Receipt Date: 20100609
  Transmission Date: 20101027
  Serious: Yes (Hospitalization)
  Sender: FDA-Public Use
  Company Number: US-BIOGENIDEC-2009BI037650

PATIENT
  Age: 55 Year
  Sex: Male

DRUGS (4)
  1. TYSABRI [Suspect]
     Indication: MULTIPLE SCLEROSIS
     Route: 042
     Dates: start: 20070102
  2. PROZAC [Concomitant]
  3. METHYLPHENIDATE [Concomitant]
  4. SINEMET [Concomitant]

REACTIONS (4)
  - COGNITIVE DISORDER [None]
  - DEPRESSION [None]
  - MULTIPLE SCLEROSIS RELAPSE [None]
  - SECONDARY PROGRESSIVE MULTIPLE SCLEROSIS [None]
